FAERS Safety Report 13471286 (Version 1)
Quarter: 2017Q2

REPORT INFORMATION
  Report Type: Spontaneous
  Country: JP (occurrence: JP)
  Receive Date: 20170424
  Receipt Date: 20170424
  Transmission Date: 20170830
  Serious: Yes (Life-Threatening, Hospitalization, Other)
  Sender: FDA-Public Use
  Company Number: JP-ACCORD-050741

PATIENT
  Age: 74 Year
  Sex: Male

DRUGS (4)
  1. CISPLATIN. [Suspect]
     Active Substance: CISPLATIN
     Indication: MIXED ADENONEUROENDOCRINE CARCINOMA
  2. ETOPOSIDE. [Suspect]
     Active Substance: ETOPOSIDE
     Indication: MIXED ADENONEUROENDOCRINE CARCINOMA
  3. DENOSUMAB [Concomitant]
     Active Substance: DENOSUMAB
  4. FEBUXOSTAT. [Concomitant]
     Active Substance: FEBUXOSTAT

REACTIONS (3)
  - Drug ineffective [Unknown]
  - Febrile neutropenia [Unknown]
  - Disseminated intravascular coagulation [Unknown]
